APPROVED DRUG PRODUCT: HYDROCORTISONE
Active Ingredient: HYDROCORTISONE
Strength: 1%
Dosage Form/Route: OINTMENT;TOPICAL
Application: A080489 | Product #003
Applicant: ALTANA INC
Approved: Approved Prior to Jan 1, 1982 | RLD: No | RS: No | Type: DISCN